FAERS Safety Report 7051346-2 (Version None)
Quarter: 2010Q4

REPORT INFORMATION
  Report Type: 
  Country: None (occurrence: None)
  Receive Date: 20101012
  Receipt Date: 20100922
  Transmission Date: 20110411
  Serious: Yes (Hospitalization)
  Sender: FDA-Public Use
  Company Number: IDA-00416

PATIENT
  Age: 2 Year
  Sex: Female
  Weight: 13 kg

DRUGS (2)
  1. PROPRANOLOL [Suspect]
  2. LEVOTHYROXINE [Suspect]

REACTIONS (4)
  - ACCIDENTAL DRUG INTAKE BY CHILD [None]
  - ADRENAL INSUFFICIENCY [None]
  - CYANOSIS [None]
  - THYROTOXIC CRISIS [None]
